FAERS Safety Report 9013596 (Version 5)
Quarter: 2014Q2

REPORT INFORMATION
  Report Type: Report from Study
  Country: MX (occurrence: MX)
  Receive Date: 20130115
  Receipt Date: 20140624
  Transmission Date: 20141212
  Serious: Yes (Other)
  Sender: FDA-Public Use
  Company Number: PHHY2012MX112335

PATIENT
  Age: 53 Year
  Sex: Female

DRUGS (3)
  1. CO-DIOVAN [Suspect]
     Indication: HYPERTENSION
     Dosage: 1 DF (160/12.5MG), DAILY
     Route: 048
     Dates: start: 201206
  2. CO-DIOVAN [Suspect]
     Dosage: 0.5 DF, (160/12.5MG)
     Route: 048
  3. CO-DIOVAN [Suspect]
     Dosage: 1 DF (160/12.5MG), DAILY
     Route: 048

REACTIONS (20)
  - Otorrhoea [Recovered/Resolved]
  - Purulent discharge [Not Recovered/Not Resolved]
  - Tinnitus [Recovered/Resolved]
  - Vertigo [Recovered/Resolved]
  - Balance disorder [Unknown]
  - Fear [Recovered/Resolved]
  - Blood iron decreased [Recovered/Resolved]
  - Weight decreased [Recovered/Resolved]
  - Psychiatric symptom [Recovering/Resolving]
  - Nervousness [Not Recovered/Not Resolved]
  - Blood cholesterol increased [Recovering/Resolving]
  - Blood triglycerides increased [Recovered/Resolved]
  - Depression [Recovering/Resolving]
  - Crying [Recovering/Resolving]
  - Decreased appetite [Recovered/Resolved]
  - Anxiety [Not Recovered/Not Resolved]
  - Insomnia [Recovered/Resolved]
  - Hypertension [Recovered/Resolved]
  - Headache [Recovering/Resolving]
  - Wrong technique in drug usage process [Unknown]
